FAERS Safety Report 8833992 (Version 2)
Quarter: 2012Q4

REPORT INFORMATION
  Report Type: 
  Country: US (occurrence: US)
  Receive Date: 20121010
  Receipt Date: 20121127
  Transmission Date: 20130627
  Serious: Yes (Hospitalization, Other)
  Sender: FDA-Public Use
  Company Number: CHPA2012US020752

PATIENT
  Age: 66 Year
  Sex: Female

DRUGS (4)
  1. MYOFLEX ANALGESIC CREME [Suspect]
     Indication: NEUROPATHY PERIPHERAL
     Dosage: UNK, ONCE IN MORNING, ONCE AT NIGHT
     Route: 061
  2. MYOFLEX ANALGESIC CREME [Suspect]
     Dosage: UNK, as needed
     Route: 061
     Dates: start: 2009
  3. BIOFREEZE//MENTHOL [Concomitant]
     Dosage: Unk, ONCE IN MORNING, ONCE AT NIGHT
  4. DRUG THERAPY NOS [Concomitant]
     Dosage: Unk, ONCE IN MORNING, ONCE AT NIGHT

REACTIONS (8)
  - Spinal fracture [Recovered/Resolved]
  - Staphylococcal infection [Recovered/Resolved]
  - Wound [Recovered/Resolved]
  - Neuralgia [Recovered/Resolved]
  - Pain [Recovered/Resolved]
  - Road traffic accident [Recovered/Resolved]
  - Off label use [Unknown]
  - Therapeutic response unexpected [Unknown]
